FAERS Safety Report 24994207 (Version 1)
Quarter: 2025Q1

REPORT INFORMATION
  Report Type: Spontaneous
  Country: GB (occurrence: GB)
  Receive Date: 20250221
  Receipt Date: 20250221
  Transmission Date: 20250409
  Serious: Yes (Other)
  Sender: TEVA
  Company Number: GB-MHRA-TPP59100245C4246422YC1739792893272

PATIENT
  Age: 39 Year
  Sex: Male
  Weight: 135 kg

DRUGS (9)
  1. PROPRANOLOL [Suspect]
     Active Substance: PROPRANOLOL HYDROCHLORIDE
     Indication: Product used for unknown indication
     Route: 065
     Dates: start: 20250129
  2. SHARPSAFE [Concomitant]
     Indication: Product used for unknown indication
     Route: 065
     Dates: start: 20250107, end: 20250204
  3. GLUCORX FINEPOINT [Concomitant]
     Indication: Product used for unknown indication
     Route: 065
     Dates: start: 20250107
  4. GLICLAZIDE [Concomitant]
     Active Substance: GLICLAZIDE
     Indication: Product used for unknown indication
     Dosage: TAKE ONE TABLET ONCE DAILY
     Route: 065
     Dates: start: 20241212, end: 20250114
  5. METFORMIN [Concomitant]
     Active Substance: METFORMIN HYDROCHLORIDE
     Indication: Product used for unknown indication
     Dosage: TAKE TWO WITH BREAKFAST AND TWO WITH EVENING MEAL
     Route: 065
     Dates: start: 20241212
  6. INSULIN ASPART [Concomitant]
     Active Substance: INSULIN ASPART
     Indication: Product used for unknown indication
     Route: 065
     Dates: start: 20250128
  7. GLUCOJECT PLUS [Concomitant]
     Indication: Product used for unknown indication
     Route: 065
     Dates: start: 20241224
  8. LANTUS [Concomitant]
     Active Substance: INSULIN GLARGINE
     Indication: Product used for unknown indication
     Dosage: 12 UNITS ONCE DAILY IN THE MORNING
     Route: 065
     Dates: start: 20250107
  9. GLUCOFIX TECH SENSOR [Concomitant]
     Indication: Product used for unknown indication
     Route: 065
     Dates: start: 20241224

REACTIONS (1)
  - Dyspnoea [Recovered/Resolved]
